FAERS Safety Report 5021724-1 (Version None)
Quarter: 2006Q2

REPORT INFORMATION
  Report Type: 
  Country: None (occurrence: None)
  Receive Date: 20060605
  Receipt Date: 20060503
  Transmission Date: 20061013
  Serious: Yes (Other)
  Sender: FDA-Public Use
  Company Number: 200610834BCC

PATIENT
  Age: 73 Year
  Sex: Male
  Weight: 65.318 kg

DRUGS (6)
  1. BRONKAID DUAL ACTION CAPLETS [Suspect]
     Indication: ASTHMA
     Dosage: SEE IMAGE
     Route: 048
     Dates: start: 20060213, end: 20060222
  2. BRONKAID DUAL ACTION CAPLETS [Suspect]
     Indication: ASTHMA
     Dosage: SEE IMAGE
     Route: 048
     Dates: start: 20020201
  3. BRONKAID DUAL ACTION CAPLETS [Suspect]
     Indication: ASTHMA
     Dosage: SEE IMAGE
     Route: 048
     Dates: start: 20060131
  4. PRIMATENE TABLET [Concomitant]
  5. LISINOPRIL [Concomitant]
  6. ALBUTEROL PUFFER [Concomitant]

REACTIONS (13)
  - ASTHMA [None]
  - COLLAPSE OF LUNG [None]
  - CONDITION AGGRAVATED [None]
  - DIZZINESS [None]
  - DRUG INEFFECTIVE [None]
  - HEART RATE INCREASED [None]
  - HYPERTENSION [None]
  - MALAISE [None]
  - MYOCARDIAL INFARCTION [None]
  - NASOPHARYNGITIS [None]
  - NAUSEA [None]
  - PHARMACEUTICAL PRODUCT COMPLAINT [None]
  - PNEUMONIA [None]
